FAERS Safety Report 6123539-X (Version None)
Quarter: 2009Q1

REPORT INFORMATION
  Report Type: 
  Country: None (occurrence: None)
  Receive Date: 20090318
  Receipt Date: 20090305
  Transmission Date: 20090719
  Serious: Yes (Hospitalization, Other)
  Sender: FDA-Public Use
  Company Number: JP-MERCK-0902USA00385

PATIENT
  Age: 85 Year
  Sex: Female
  Weight: 35 kg

DRUGS (3)
  1. PEPCID [Suspect]
     Route: 048
  2. MOXIFLOXACIN HYDROCHLORIDE [Suspect]
     Indication: CELLULITIS
     Route: 048
  3. NIFEDIPINE [Concomitant]
     Route: 065

REACTIONS (3)
  - CELLULITIS [None]
  - CEREBRAL HAEMORRHAGE [None]
  - ELECTROCARDIOGRAM QT PROLONGED [None]
